FAERS Safety Report 6499211-3 (Version None)
Quarter: 2009Q4

REPORT INFORMATION
  Report Type: 
  Country: None (occurrence: None)
  Receive Date: 20091215
  Receipt Date: 20091130
  Transmission Date: 20100525
  Serious: Yes (Other)
  Sender: FDA-Public Use
  Company Number: FR-GENENTECH-294495

PATIENT
  Sex: Female

DRUGS (11)
  1. LUCENTIS [Suspect]
     Indication: RETINAL NEOVASCULARISATION
     Dosage: UNK
     Route: 031
     Dates: start: 20090618
  2. LUCENTIS [Suspect]
  3. SINGULAIR [Concomitant]
     Indication: DRUG USE FOR UNKNOWN INDICATION
  4. SERESTA [Concomitant]
     Indication: DRUG USE FOR UNKNOWN INDICATION
  5. PARIET [Concomitant]
     Indication: DRUG USE FOR UNKNOWN INDICATION
  6. AMLOR [Concomitant]
     Indication: DRUG USE FOR UNKNOWN INDICATION
  7. HYPERIUM [Concomitant]
     Indication: DRUG USE FOR UNKNOWN INDICATION
  8. TRIFLUCAN [Concomitant]
     Indication: DRUG USE FOR UNKNOWN INDICATION
  9. STABLON [Concomitant]
     Indication: DRUG USE FOR UNKNOWN INDICATION
  10. TRINITRINE [Concomitant]
     Indication: DRUG USE FOR UNKNOWN INDICATION
  11. SERETIDE [Concomitant]
     Indication: DRUG USE FOR UNKNOWN INDICATION

REACTIONS (1)
  - CEREBROVASCULAR ACCIDENT [None]
